FAERS Safety Report 5330796-6 (Version None)
Quarter: 2007Q2

REPORT INFORMATION
  Report Type: 
  Country: None (occurrence: None)
  Receive Date: 20070522
  Receipt Date: 20070511
  Transmission Date: 20071010
  Serious: Yes (Life-Threatening, Other)
  Sender: FDA-Public Use
  Company Number: DE-JNJFOC-20070502630

PATIENT
  Sex: Female
  Weight: 4.86 kg

DRUGS (2)
  1. DAKTAR 2% MUNDGEL [Suspect]
     Route: 048
  2. DAKTAR 2% MUNDGEL [Suspect]
     Indication: ORAL CANDIDIASIS
     Route: 048

REACTIONS (3)
  - DRUG ADMINISTRATION ERROR [None]
  - PALLOR [None]
  - UNRESPONSIVE TO STIMULI [None]
